FAERS Safety Report 8069482-0 (Version None)
Quarter: 2012Q1

REPORT INFORMATION
  Report Type: 
  Country: None (occurrence: None)
  Receive Date: 20120125
  Receipt Date: 20120118
  Transmission Date: 20120608
  Serious: Yes (Other)
  Sender: FDA-Public Use
  Company Number: TR-US-EMD SERONO, INC.-7107572

PATIENT
  Sex: Female

DRUGS (2)
  1. REBIF [Suspect]
     Indication: MULTIPLE SCLEROSIS
     Route: 058
     Dates: start: 20100201, end: 20111201
  2. PROZAC [Suspect]
     Indication: ANTIDEPRESSANT THERAPY
     Route: 048
     Dates: end: 20111201

REACTIONS (2)
  - PROTEINURIA [None]
  - ARTHRALGIA [None]
